FAERS Safety Report 9372422 (Version 1)
Quarter: 2013Q2

REPORT INFORMATION
  Report Type: Report from Study
  Country: US (occurrence: US)
  Receive Date: 20130627
  Receipt Date: 20130627
  Transmission Date: 20140414
  Serious: Yes (Death)
  Sender: FDA-Public Use
  Company Number: US-MYLANLABS-2012S1023392

PATIENT
  Age: 84 Year
  Sex: Female

DRUGS (10)
  1. CLOZAPINE TABLETS [Suspect]
     Indication: MAJOR DEPRESSION
     Route: 048
     Dates: end: 2012
  2. CLOZAPINE TABLETS [Suspect]
     Indication: BIPOLAR DISORDER
     Route: 048
     Dates: end: 2012
  3. CLOZAPINE TABLETS [Suspect]
     Indication: MAJOR DEPRESSION
     Route: 048
     Dates: end: 2012
  4. CLOZAPINE TABLETS [Suspect]
     Indication: BIPOLAR DISORDER
     Route: 048
     Dates: end: 2012
  5. ASPIRIN [Concomitant]
  6. TRICOR [Concomitant]
  7. GLIPIZIDE [Concomitant]
  8. METOPROLOL [Concomitant]
  9. CELEXA [Concomitant]
  10. MULTIVITAMIN [Concomitant]

REACTIONS (1)
  - Death [Fatal]
